FAERS Safety Report 6390773-3 (Version None)
Quarter: 2009Q4

REPORT INFORMATION
  Report Type: 
  Country: None (occurrence: None)
  Receive Date: 20091006
  Receipt Date: 20090923
  Transmission Date: 20100525
  Serious: No
  Sender: FDA-Public Use
  Company Number: AU-ELI_LILLY_AND_COMPANY-AU200909005430

PATIENT
  Sex: Male

DRUGS (1)
  1. CIALIS [Suspect]
     Dosage: UNK, UNKNOWN
     Route: 065

REACTIONS (2)
  - OCULAR DISCOMFORT [None]
  - PUPILLARY DISORDER [None]
